FAERS Safety Report 12743706 (Version 1)
Quarter: 2016Q3

REPORT INFORMATION
  Report Type: Spontaneous
  Country: DK (occurrence: DK)
  Receive Date: 20160914
  Receipt Date: 20160914
  Transmission Date: 20161109
  Serious: Yes (Other)
  Sender: FDA-Public Use
  Company Number: DK-IMPAX LABORATORIES, INC-2016-IPXL-00984

PATIENT
  Age: 55 Year
  Sex: Male

DRUGS (1)
  1. ADRENACLICK [Suspect]
     Active Substance: EPINEPHRINE
     Indication: ANAPHYLACTIC REACTION
     Dosage: 1 MG, UNK
     Route: 065

REACTIONS (3)
  - Accidental overdose [Unknown]
  - Acute myocardial infarction [Unknown]
  - Arteriospasm coronary [None]
